FAERS Safety Report 7774256 (Version 4)
Quarter: 2016Q2

REPORT INFORMATION
  Report Type: Spontaneous
  Country: US (occurrence: US)
  Receive Date: 20110126
  Receipt Date: 20160524
  Transmission Date: 20160815
  Serious: Yes (Hospitalization, Disabling)
  Sender: FDA-Public Use
  Company Number: US-BAYER-2011-006408

PATIENT
  Age: 31 Year
  Sex: Female
  Weight: 96 kg

DRUGS (4)
  1. CONCEPTROL [Concomitant]
     Active Substance: NONOXYNOL-9
     Dosage: 4 %, UNK
     Dates: start: 20110331
  2. LEVONORGESTREL. [Concomitant]
     Active Substance: LEVONORGESTREL
     Indication: POST COITAL CONTRACEPTION
     Dosage: 0.75 MG, UNK
  3. MIRENA [Suspect]
     Active Substance: LEVONORGESTREL
     Indication: CONTRACEPTION
     Dosage: 20 MCG/24HR, CONT
     Route: 015
     Dates: start: 20071220, end: 20110330
  4. LEVETIRACETAM. [Concomitant]
     Active Substance: LEVETIRACETAM
     Dosage: 250 MG, BID
     Route: 048
     Dates: start: 20110118

REACTIONS (9)
  - Seizure [Not Recovered/Not Resolved]
  - Somnolence [None]
  - Road traffic accident [None]
  - Acne [None]
  - Vaginal disorder [None]
  - Hirsutism [Not Recovered/Not Resolved]
  - Generalised tonic-clonic seizure [Not Recovered/Not Resolved]
  - Hair disorder [None]
  - Weight increased [Not Recovered/Not Resolved]

NARRATIVE: CASE EVENT DATE: 20101228
